FAERS Safety Report 9514355 (Version 3)
Quarter: 2013Q3

REPORT INFORMATION
  Report Type: Spontaneous
  Country: US (occurrence: US)
  Receive Date: 20130911
  Receipt Date: 20130923
  Transmission Date: 20140515
  Serious: Yes (Life-Threatening, Hospitalization)
  Sender: FDA-Public Use
  Company Number: US-ROCHE-1271593

PATIENT
  Age: 90 Year
  Sex: Male

DRUGS (13)
  1. LUCENTIS [Suspect]
     Indication: AGE-RELATED MACULAR DEGENERATION
     Route: 050
     Dates: start: 20130617
  2. HYDROCORTISONE [Concomitant]
     Indication: SEBORRHOEA
     Route: 065
  3. TENORMIN [Concomitant]
     Dosage: DOSE: 1 TABLET
     Route: 048
  4. COLACE [Concomitant]
     Indication: CORONARY ARTERY DISEASE
     Dosage: DOSE: 1 CAPSULE
     Route: 048
  5. LASIX [Concomitant]
     Indication: CARDIAC FAILURE CONGESTIVE
     Dosage: DOSE: 2 TABLETS, ALTERNATE 40 MG DAILY WITH 20 MG DAILY
     Route: 065
  6. APRESOLINE [Concomitant]
     Indication: HYPERTENSION
     Dosage: DOSE: 2 TABLETS
     Route: 048
  7. NITROSTAT [Concomitant]
     Indication: CHEST PAIN
     Route: 060
  8. PERCOCET [Concomitant]
     Indication: SPINAL COMPRESSION FRACTURE
     Dosage: DOSE: 2 TABLETS
     Route: 048
  9. MIRALAX [Concomitant]
  10. ZOLOFT [Concomitant]
     Indication: DEPRESSION
     Route: 048
  11. ZOCOR [Concomitant]
     Route: 065
  12. FLOMAX (UNITED STATES) [Concomitant]
     Indication: BENIGN PROSTATIC HYPERPLASIA
     Route: 048
  13. MIRALAX [Concomitant]
     Indication: SPINAL COMPRESSION FRACTURE
     Dosage: DOSE: 1 PACKET
     Route: 048

REACTIONS (1)
  - Acute myocardial infarction [Recovered/Resolved]
